FAERS Safety Report 5352221-1 (Version None)
Quarter: 2007Q2

REPORT INFORMATION
  Report Type: 
  Country: None (occurrence: None)
  Receive Date: 20070611
  Receipt Date: 20070530
  Transmission Date: 20071010
  Serious: Yes (Death)
  Sender: FDA-Public Use
  Company Number: CA-JNJFOC-20070600453

PATIENT
  Age: 4 Year
  Sex: Male

DRUGS (1)
  1. FENTANYL TRANSDERMAL SYSTEM [Suspect]
     Indication: PHARYNGOLARYNGEAL PAIN
     Route: 062

REACTIONS (2)
  - DEATH [None]
  - OFF LABEL USE [None]
